FAERS Safety Report 4973999-2 (Version None)
Quarter: 2006Q2

REPORT INFORMATION
  Report Type: 
  Country: None (occurrence: None)
  Receive Date: 20060417
  Receipt Date: 20060228
  Transmission Date: 20061013
  Serious: Yes (Death)
  Sender: FDA-Public Use
  Company Number: US-BRISTOL-MYERS SQUIBB COMPANY-13298047

PATIENT
  Age: 50 Year
  Sex: Male

DRUGS (4)
  1. ABILIFY [Suspect]
     Indication: BIPOLAR I DISORDER
     Route: 048
     Dates: start: 20051206
  2. KLONOPIN [Concomitant]
  3. LITHIUM [Concomitant]
  4. COGENTIN [Concomitant]

REACTIONS (1)
  - SUDDEN CARDIAC DEATH [None]
